FAERS Safety Report 7371375-9 (Version None)
Quarter: 2011Q1

REPORT INFORMATION
  Report Type: 
  Country: None (occurrence: None)
  Receive Date: 20110324
  Receipt Date: 20110309
  Transmission Date: 20110831
  Serious: Yes (Other)
  Sender: FDA-Public Use
  Company Number: US-ELI_LILLY_AND_COMPANY-US201103003404

PATIENT
  Age: 61 Year
  Sex: Female

DRUGS (19)
  1. CYMBALTA [Suspect]
     Indication: DEPRESSION
     Dosage: 20 MG, DAILY (1/D)
  2. BUSPAR [Concomitant]
     Dosage: 15 MG, 2/D
  3. ASPIRIN [Concomitant]
  4. BUSPAR [Concomitant]
     Dosage: 45 MG, DAILY (1/D)
  5. NEXIUM [Concomitant]
  6. PRAVASTATIN [Concomitant]
  7. ASCORBIC ACID [Concomitant]
  8. ACYCLOVIR [Concomitant]
  9. ESTRACE [Concomitant]
  10. AMBIEN [Concomitant]
  11. VITAMIN D [Concomitant]
  12. SYMBICORT [Concomitant]
  13. SYSTANE [Concomitant]
     Indication: DRY EYE
     Dates: start: 20010101
  14. DEPAKOTE [Concomitant]
     Dates: end: 20110301
  15. MULTI-VITAMIN [Concomitant]
  16. POLYETHYLENE GLYCOL [Concomitant]
  17. CYMBALTA [Suspect]
     Dosage: 20 MG, DAILY (1/D)
     Dates: start: 20080101
  18. CYMBALTA [Suspect]
     Dosage: 20 MG, QOD
     Dates: end: 20110301
  19. VICODIN [Concomitant]

REACTIONS (34)
  - RENAL CYST INFECTION [None]
  - OFF LABEL USE [None]
  - SOMNOLENCE [None]
  - ANIMAL BITE [None]
  - RENAL IMPAIRMENT [None]
  - RENAL CYST HAEMORRHAGE [None]
  - DYSPNOEA [None]
  - ABNORMAL BEHAVIOUR [None]
  - INTENTIONAL DRUG MISUSE [None]
  - MUSCLE RUPTURE [None]
  - SUICIDAL IDEATION [None]
  - WEIGHT DECREASED [None]
  - DRY EYE [None]
  - CONSTIPATION [None]
  - ABNORMAL DREAMS [None]
  - DISTURBANCE IN ATTENTION [None]
  - MALAISE [None]
  - CONGENITAL CYSTIC KIDNEY DISEASE [None]
  - EATING DISORDER [None]
  - TEMPOROMANDIBULAR JOINT SYNDROME [None]
  - SKIN DISCOLOURATION [None]
  - HEADACHE [None]
  - BREATH ODOUR [None]
  - STRESS [None]
  - DIZZINESS [None]
  - OEDEMA PERIPHERAL [None]
  - DRY MOUTH [None]
  - RENAL PAIN [None]
  - HEPATIC CYST [None]
  - LIVER DISORDER [None]
  - BRUXISM [None]
  - APATHY [None]
  - HYPOKINESIA [None]
  - MUSCLE INJURY [None]
